FAERS Safety Report 8579511-3 (Version None)
Quarter: 2012Q3

REPORT INFORMATION
  Report Type: 
  Country: None (occurrence: None)
  Receive Date: 20120808
  Receipt Date: 20120803
  Transmission Date: 20120928
  Serious: Yes (Hospitalization)
  Sender: FDA-Public Use
  Company Number: JP-GLAXOSMITHKLINE-B0820845A

PATIENT
  Sex: Female

DRUGS (12)
  1. ACYCRIL [Concomitant]
     Route: 042
     Dates: start: 20120731, end: 20120801
  2. RECALBON [Concomitant]
     Route: 048
  3. LOXONIN [Concomitant]
     Route: 065
  4. ARASENA-A [Concomitant]
     Route: 061
  5. AMITRIPTYLINE HCL [Concomitant]
     Route: 048
  6. MUCOSTA [Concomitant]
     Route: 065
  7. VALTREX [Suspect]
     Indication: HERPES ZOSTER
     Dosage: 1000MG THREE TIMES PER DAY
     Route: 048
     Dates: start: 20120731, end: 20120803
  8. ALLEGRA [Concomitant]
     Route: 048
  9. EPADEL [Concomitant]
     Route: 048
  10. DIFLUNISAL [Concomitant]
     Route: 048
  11. URITOS [Concomitant]
     Route: 048
  12. ATORVASTATIN [Concomitant]
     Route: 048

REACTIONS (4)
  - HEAT ILLNESS [None]
  - DEHYDRATION [None]
  - RENAL FAILURE ACUTE [None]
  - DRUG LEVEL INCREASED [None]
